FAERS Safety Report 13682108 (Version 2)
Quarter: 2017Q3

REPORT INFORMATION
  Report Type: Spontaneous
  Country: US (occurrence: US)
  Receive Date: 20170623
  Receipt Date: 20170714
  Transmission Date: 20171127
  Serious: Yes (Other)
  Sender: FDA-Public Use
  Company Number: US-JNJCP-30000391827

PATIENT
  Age: 4 Year
  Sex: Female
  Weight: 16 kg

DRUGS (1)
  1. AVEENO BABY ECZEMA THERAPY [Suspect]
     Active Substance: OATMEAL
     Indication: DRY SKIN PROPHYLAXIS
     Dosage: DIME TO QUARTER SIZE AMOUNT, USED TWICE
     Route: 061
     Dates: start: 20170610, end: 20170610

REACTIONS (4)
  - Application site papules [Recovered/Resolved]
  - Application site rash [Recovered/Resolved]
  - Application site irritation [Recovered/Resolved]
  - Application site urticaria [Recovered/Resolved]

NARRATIVE: CASE EVENT DATE: 20170610
